FAERS Safety Report 10010971 (Version 2)
Quarter: 2014Q2

REPORT INFORMATION
  Report Type: Spontaneous
  Country: US (occurrence: US)
  Receive Date: 20140314
  Receipt Date: 20140522
  Transmission Date: 20141212
  Serious: Yes (Other)
  Sender: FDA-Public Use
  Company Number: US-TEVA-467875USA

PATIENT
  Age: 55 Year
  Sex: Female
  Weight: 48.58 kg

DRUGS (6)
  1. FENTANYL [Suspect]
     Indication: BREAKTHROUGH PAIN
     Dates: end: 20140306
  2. MORPHINE SULFATE [Concomitant]
     Indication: PAIN
     Dosage: 60 MILLIGRAM DAILY;
     Route: 048
  3. ZOFRAN [Concomitant]
     Indication: NAUSEA
     Route: 048
  4. LISINOPRIL [Concomitant]
  5. AVASTIN [Concomitant]
     Dosage: EVERY THREE WEEKS
     Route: 042
  6. XELODA [Concomitant]
     Dosage: FOR 14 DAYS THEN 7 DAYS OFF
     Route: 048

REACTIONS (6)
  - Renal disorder [Not Recovered/Not Resolved]
  - Intestinal resection [Recovered/Resolved]
  - Colon cancer metastatic [Not Recovered/Not Resolved]
  - Pain [Not Recovered/Not Resolved]
  - Hypertension [Not Recovered/Not Resolved]
  - Malaise [Not Recovered/Not Resolved]
